FAERS Safety Report 19430816 (Version 1)
Quarter: 2021Q2

REPORT INFORMATION
  Report Type: Spontaneous
  Country: BR (occurrence: BR)
  Receive Date: 20210617
  Receipt Date: 20210617
  Transmission Date: 20210717
  Serious: Yes (Other)
  Sender: FDA-Public Use
  Company Number: BR-NOVOPROD-818850

PATIENT
  Age: 63 Year
  Sex: Female
  Weight: 58.7 kg

DRUGS (9)
  1. SIMVASTATIN. [Concomitant]
     Active Substance: SIMVASTATIN
     Dosage: 20 MG
  2. CALCIUM + VITAMIN D [CALCIUM;COLECALCIFEROL] [Concomitant]
     Active Substance: CALCIUM\CHOLECALCIFEROL
     Dosage: CALCIUM 600MG + VITAMIN D 400UI 1 TABLET A DAY
  3. TRESIBA [Suspect]
     Active Substance: INSULIN DEGLUDEC
     Dosage: 10 IU, QD
     Route: 065
  4. DENOSUMAB [Concomitant]
     Active Substance: DENOSUMAB
     Dosage: 1X EVERY 6 MONTHS
  5. TRESIBA [Suspect]
     Active Substance: INSULIN DEGLUDEC
     Indication: TYPE 2 DIABETES MELLITUS
     Dosage: 10 IU, QD (BED TIME)
     Route: 065
  6. TRESIBA [Suspect]
     Active Substance: INSULIN DEGLUDEC
     Dosage: 12 IU, QD
     Route: 065
  7. GLIFAGE XR [Concomitant]
     Active Substance: METFORMIN HYDROCHLORIDE
     Indication: TYPE 2 DIABETES MELLITUS
     Dosage: 1 G, QD (1 G AT NIGHT)
  8. TRESIBA [Suspect]
     Active Substance: INSULIN DEGLUDEC
     Dosage: 14 IU, QD (ON THE DAYS OF CHEMO AND 2 DAYS AFTER )
     Route: 065
  9. VITAMIN D3 [Concomitant]
     Active Substance: CHOLECALCIFEROL
     Dosage: 10,000UI WEEK

REACTIONS (2)
  - Metastases to lymph nodes [Unknown]
  - Hyperglycaemia [Recovered/Resolved]

NARRATIVE: CASE EVENT DATE: 2020
